FAERS Safety Report 18059893 (Version 1)
Quarter: 2020Q3

REPORT INFORMATION
  Report Type: Spontaneous
  Country: US (occurrence: US)
  Receive Date: 20200723
  Receipt Date: 20200723
  Transmission Date: 20201103
  Serious: No
  Sender: FDA-Public Use
  Company Number: None

PATIENT
  Age: 64 Year
  Sex: Female
  Weight: 78.75 kg

DRUGS (1)
  1. TUSSIN ADULT MUCUS AND CHEST CONGESTION [Suspect]
     Active Substance: GUAIFENESIN
     Indication: PULMONARY CONGESTION
     Dosage: ?          QUANTITY:1 OUNCE(S);?
     Route: 048
     Dates: start: 20200722, end: 20200722

REACTIONS (1)
  - Throat irritation [None]

NARRATIVE: CASE EVENT DATE: 20200722
